FAERS Safety Report 17583468 (Version 7)
Quarter: 2022Q2

REPORT INFORMATION
  Report Type: Report from Study
  Country: US (occurrence: US)
  Receive Date: 20200326
  Receipt Date: 20220620
  Transmission Date: 20220720
  Serious: No
  Sender: FDA-Public Use
  Company Number: None

PATIENT
  Sex: Female

DRUGS (1)
  1. COSENTYX [Suspect]
     Active Substance: SECUKINUMAB
     Indication: Product used for unknown indication
     Dosage: UNK
     Route: 065

REACTIONS (8)
  - Urinary tract infection [Unknown]
  - Condition aggravated [Unknown]
  - Joint injury [Unknown]
  - Peripheral swelling [Unknown]
  - Arthritis [Unknown]
  - Psoriasis [Unknown]
  - Injection site pain [Unknown]
  - Needle issue [Unknown]
